FAERS Safety Report 6311553-0 (Version None)
Quarter: 2009Q3

REPORT INFORMATION
  Report Type: 
  Country: None (occurrence: None)
  Receive Date: 20090813
  Receipt Date: 20090813
  Transmission Date: 20100115
  Serious: Yes (Hospitalization)
  Sender: FDA-Public Use
  Company Number: None

PATIENT
  Age: 47 Year
  Sex: Male
  Weight: 88.4514 kg

DRUGS (5)
  1. SUSTIVA [Suspect]
     Indication: HIV TEST POSITIVE
     Dosage: 600 MG QD X 5 DAYS
     Dates: start: 20071011
  2. TRUVADA [Suspect]
     Indication: HIV TEST POSITIVE
     Dosage: 200/300 MG QD X 5 DAYS
     Dates: start: 20071011
  3. LORAZEPAM [Concomitant]
  4. TESTOSTERONE [Concomitant]
  5. PANCRELIPASE [Concomitant]

REACTIONS (1)
  - ANAL ABSCESS [None]
